FAERS Safety Report 6159238-8 (Version None)
Quarter: 2009Q2

REPORT INFORMATION
  Report Type: 
  Country: None (occurrence: None)
  Receive Date: 20090417
  Receipt Date: 20090408
  Transmission Date: 20091009
  Serious: Yes (Other)
  Sender: FDA-Public Use
  Company Number: US-JNJFOC-20090402667

PATIENT
  Age: 15 Month
  Sex: Male
  Weight: 10.43 kg

DRUGS (1)
  1. CHILDREN'S TYLENOL PLUS FLU BUBBLEGUM [Suspect]
     Indication: SEDATION
     Dosage: 2.5 ML EVERY 4-6 HOURS
     Route: 048

REACTIONS (5)
  - CONSTIPATION [None]
  - DEPENDENCE [None]
  - DISTURBANCE IN SOCIAL BEHAVIOUR [None]
  - INTENTIONAL DRUG MISUSE [None]
  - WRONG DRUG ADMINISTERED [None]
